FAERS Safety Report 17540667 (Version 1)
Quarter: 2020Q1

REPORT INFORMATION
  Report Type: Spontaneous
  Country: FR (occurrence: FR)
  Receive Date: 20200313
  Receipt Date: 20200313
  Transmission Date: 20200409
  Serious: Yes (Hospitalization)
  Sender: FDA-Public Use
  Company Number: FR-009507513-2003FRA001693

PATIENT
  Age: 80 Year
  Sex: Female

DRUGS (2)
  1. CELESTENE [BETAMETHASONE] [Suspect]
     Active Substance: BETAMETHASONE
     Indication: BRONCHITIS
     Dosage: 6 MILLIGRAM, QD
     Route: 048
     Dates: start: 20200211, end: 20200215
  2. PYOSTACINE [Suspect]
     Active Substance: PRISTINAMYCIN
     Indication: BRONCHITIS
     Dosage: 2000 MILLIGRAM, QD
     Route: 048
     Dates: start: 20200211, end: 20200215

REACTIONS (1)
  - Pancreatitis [Recovering/Resolving]

NARRATIVE: CASE EVENT DATE: 20200216
